FAERS Safety Report 5451736-5 (Version None)
Quarter: 2007Q3

REPORT INFORMATION
  Report Type: 
  Country: None (occurrence: None)
  Receive Date: 20070806
  Receipt Date: 20070126
  Transmission Date: 20080115
  Serious: Yes (Other)
  Sender: FDA-Public Use
  Company Number: 33936

PATIENT
  Age: 79 Year
  Sex: Female
  Weight: 71.2147 kg

DRUGS (5)
  1. MIDAZOLAM HCL [Suspect]
     Indication: SEDATION
     Dosage: 2MG 1-3MIN/IV (TOTAL 12MG)
     Route: 042
     Dates: start: 20070124
  2. MIDAZOLAM HCL [Suspect]
     Indication: SEDATION
  3. RYTHMOL [Concomitant]
  4. CLOMIDINE [Concomitant]
  5. FENTANYL [Concomitant]

REACTIONS (1)
  - DRUG INEFFECTIVE [None]
